FAERS Safety Report 4342605-2 (Version None)
Quarter: 2004Q1

REPORT INFORMATION
  Report Type: 
  Country: None (occurrence: None)
  Receive Date: 20040213
  Receipt Date: 20031117
  Transmission Date: 20041129
  Serious: Yes (Hospitalization)
  Sender: FDA-Public Use
  Company Number: 352193

PATIENT
  Age: 61 Year
  Sex: Male
  Weight: 117.9 kg

DRUGS (4)
  1. PEGASYS [Suspect]
     Indication: HEPATITIS
     Dosage: SUBCUTANEOUS
     Route: 058
     Dates: start: 20031020, end: 20031117
  2. COPEGUS [Suspect]
     Indication: HEPATITIS
     Dosage: 5 DOSE FORM DAILY ORAL
     Route: 048
     Dates: start: 20031020
  3. GLUCOPHAGE [Concomitant]
  4. BLOOD PRESSURE MEDICATION NOS (ANTIHYPERTENSIVE NOS) [Concomitant]

REACTIONS (3)
  - RECTAL HAEMORRHAGE [None]
  - RED BLOOD CELL COUNT DECREASED [None]
  - WHITE BLOOD CELL COUNT DECREASED [None]
